FAERS Safety Report 5888672-6 (Version None)
Quarter: 2008Q3

REPORT INFORMATION
  Report Type: 
  Country: None (occurrence: None)
  Receive Date: 20080916
  Receipt Date: 20080908
  Transmission Date: 20090109
  Serious: Yes (Life-Threatening, Hospitalization, Other)
  Sender: FDA-Public Use
  Company Number: VISP-NO-0809S-0437

PATIENT
  Age: 71 Year
  Sex: Male

DRUGS (1)
  1. VISIPAQUE [Suspect]
     Indication: DRUG USE FOR UNKNOWN INDICATION
     Dosage: 185 ML, SINGLE DOSE, I.A.
     Route: 013
     Dates: start: 20080107, end: 20080107

REACTIONS (4)
  - ANAPHYLACTOID REACTION [None]
  - EJECTION FRACTION DECREASED [None]
  - PULMONARY OEDEMA [None]
  - VENTRICULAR FIBRILLATION [None]
